FAERS Safety Report 8279997-8 (Version None)
Quarter: 2012Q2

REPORT INFORMATION
  Report Type: 
  Country: None (occurrence: None)
  Receive Date: 20120412
  Receipt Date: 20110620
  Transmission Date: 20120825
  Serious: No
  Sender: FDA-Public Use
  Company Number: US-ASTRAZENECA-2011SE37380

PATIENT
  Age: 81 Year
  Sex: Male
  Weight: 79.4 kg

DRUGS (2)
  1. NEXIUM [Suspect]
     Indication: GASTROOESOPHAGEAL REFLUX DISEASE
     Route: 048
     Dates: start: 20030101
  2. NEXIUM [Suspect]
     Route: 048
     Dates: start: 20110501

REACTIONS (3)
  - INCORRECT DRUG ADMINISTRATION DURATION [None]
  - DYSPHONIA [None]
  - COUGH [None]
